FAERS Safety Report 12859531 (Version 1)
Quarter: 2016Q4

REPORT INFORMATION
  Report Type: Spontaneous
  Country: US (occurrence: US)
  Receive Date: 20161018
  Receipt Date: 20161018
  Transmission Date: 20170207
  Serious: Yes (Hospitalization, Other)
  Sender: FDA-Public Use
  Company Number: US-FRESENIUS MEDICAL CARE RENAL THERAPIES GROUP-FMC-1608-000833

PATIENT
  Sex: Male
  Weight: 69.46 kg

DRUGS (1)
  1. DELFLEX WITH DEXTROSE 1.5% LOW MAGNESIUM LOW CALCIUM [Suspect]
     Active Substance: CALCIUM CHLORIDE\DEXTROSE\MAGNESIUM CHLORIDE\SODIUM CHLORIDE\SODIUM LACTATE
     Indication: END STAGE RENAL DISEASE
     Route: 033
     Dates: start: 20160519, end: 20160819

REACTIONS (6)
  - Escherichia test positive [None]
  - Peritonitis bacterial [Recovering/Resolving]
  - Abdominal hernia [Recovering/Resolving]
  - Staphylococcus test positive [None]
  - Inadequate aseptic technique in use of product [None]
  - Device occlusion [Recovering/Resolving]
